FAERS Safety Report 18549673 (Version 3)
Quarter: 2025Q2

REPORT INFORMATION
  Report Type: Spontaneous
  Country: PL (occurrence: PL)
  Receive Date: 20201126
  Receipt Date: 20250617
  Transmission Date: 20250716
  Serious: Yes (Hospitalization, Other)
  Sender: AUROBINDO
  Company Number: PL-LEKAM-2020-30-ARIPILEK

PATIENT
  Age: 30 Year
  Sex: Female

DRUGS (10)
  1. ARIPIPRAZOLE [Suspect]
     Active Substance: ARIPIPRAZOLE
     Indication: Product used for unknown indication
     Dosage: 15 MILLIGRAM, ONCE A DAY
     Route: 065
  2. ARIPIPRAZOLE [Suspect]
     Active Substance: ARIPIPRAZOLE
     Dosage: 7.5 MILLIGRAM, ONCE A DAY
     Route: 065
  3. CARBAMAZEPINE [Suspect]
     Active Substance: CARBAMAZEPINE
     Indication: Product used for unknown indication
     Dosage: 600 MILLIGRAM, ONCE A DAY
     Route: 065
  4. HALOPERIDOL [Suspect]
     Active Substance: HALOPERIDOL
     Indication: Product used for unknown indication
     Dosage: 3 MILLIGRAM, ONCE A DAY
     Route: 065
  5. HALOPERIDOL [Suspect]
     Active Substance: HALOPERIDOL
     Route: 065
  6. HALOPERIDOL [Suspect]
     Active Substance: HALOPERIDOL
     Route: 048
  7. PERAZINE [Suspect]
     Active Substance: PERAZINE
     Indication: Product used for unknown indication
     Dosage: 50 MILLIGRAM, ONCE A DAY
     Route: 065
  8. PERAZINE [Suspect]
     Active Substance: PERAZINE
     Dosage: 25 MILLIGRAM, ONCE A DAY
     Route: 065
  9. PERAZINE [Suspect]
     Active Substance: PERAZINE
     Dosage: 5 MILLIGRAM, ONCE A DAY
     Route: 065
  10. PERAZINE [Suspect]
     Active Substance: PERAZINE
     Dosage: 7.5 MILLIGRAM, ONCE A DAY
     Route: 065

REACTIONS (7)
  - Genital haemorrhage [Unknown]
  - Mental impairment [Unknown]
  - Tachyphrenia [Unknown]
  - Fear [Unknown]
  - Somnolence [Unknown]
  - Anxiety [Unknown]
  - Fall [Unknown]
